FAERS Safety Report 12233752 (Version 2)
Quarter: 2016Q2

REPORT INFORMATION
  Report Type: Report from Study
  Country: BR (occurrence: BR)
  Receive Date: 20160404
  Receipt Date: 20160414
  Transmission Date: 20160815
  Serious: No
  Sender: FDA-Public Use
  Company Number: PHHY2016BR041068

PATIENT
  Sex: Male
  Weight: 75 kg

DRUGS (2)
  1. GLIVEC [Suspect]
     Active Substance: IMATINIB MESYLATE
     Indication: CHRONIC MYELOID LEUKAEMIA
     Route: 065
  2. TASIGNA [Suspect]
     Active Substance: NILOTINIB
     Indication: CHRONIC MYELOID LEUKAEMIA
     Dosage: 800 MG, (2 DF IN MORNING AND 2 DF AT NIGHT))
     Route: 048
     Dates: start: 20141013

REACTIONS (8)
  - Skin mass [Unknown]
  - Dry skin [Unknown]
  - Alopecia [Unknown]
  - Skin hypertrophy [Unknown]
  - Photophobia [Unknown]
  - Gastritis [Unknown]
  - Rash [Unknown]
  - Incorrect dosage administered [Unknown]
